FAERS Safety Report 11365524 (Version 1)
Quarter: 2015Q3

REPORT INFORMATION
  Report Type: Spontaneous
  Country: US (occurrence: US)
  Receive Date: 20150811
  Receipt Date: 20150811
  Transmission Date: 20151125
  Serious: No
  Sender: FDA-Public Use
  Company Number: US-BAYER-2015-397573

PATIENT
  Age: 59 Year
  Sex: Female
  Weight: 77.9 kg

DRUGS (1)
  1. MIRALAX [Suspect]
     Active Substance: POLYETHYLENE GLYCOL 3350
     Indication: VOLVULUS
     Dosage: 1 UNIT DOSE, QD
     Route: 048
     Dates: end: 2015

REACTIONS (2)
  - Product use issue [Unknown]
  - Gastrointestinal disorder [Not Recovered/Not Resolved]

NARRATIVE: CASE EVENT DATE: 2015
